FAERS Safety Report 5804728-8 (Version None)
Quarter: 2008Q3

REPORT INFORMATION
  Report Type: 
  Country: None (occurrence: None)
  Receive Date: 20080709
  Receipt Date: 20080409
  Transmission Date: 20090109
  Serious: Yes (Hospitalization, Other)
  Sender: FDA-Public Use
  Company Number: PHBS2007JP21221

PATIENT
  Sex: Male

DRUGS (3)
  1. LAMISIL [Suspect]
     Dosage: UNK
     Route: 048
     Dates: start: 20060801, end: 20061128
  2. TAKEPRON [Concomitant]
     Dosage: 15 MG, UNK
     Route: 048
     Dates: start: 20060801
  3. BLOPRESS [Concomitant]
     Dosage: 4 MG, UNK
     Route: 048
     Dates: start: 20060801

REACTIONS (2)
  - LIVER DISORDER [None]
  - RENAL FAILURE [None]
